FAERS Safety Report 6993222-7 (Version None)
Quarter: 2010Q3

REPORT INFORMATION
  Report Type: 
  Country: None (occurrence: None)
  Receive Date: 20100917
  Receipt Date: 20090904
  Transmission Date: 20110219
  Serious: No
  Sender: FDA-Public Use
  Company Number: US-ASTRAZENECA-2009SE09096

PATIENT
  Age: 67 Year
  Sex: Female
  Weight: 68 kg

DRUGS (1)
  1. SEROQUEL [Suspect]
     Route: 048

REACTIONS (9)
  - ANGINA PECTORIS [None]
  - CHEST PAIN [None]
  - CONFUSIONAL STATE [None]
  - DYSPNOEA [None]
  - HALLUCINATION [None]
  - HEART RATE IRREGULAR [None]
  - HYPERHIDROSIS [None]
  - NIGHTMARE [None]
  - SLEEP DISORDER [None]
